FAERS Safety Report 8089236-9 (Version None)
Quarter: 2012Q1

REPORT INFORMATION
  Report Type: 
  Country: None (occurrence: None)
  Receive Date: 20120128
  Receipt Date: 20110705
  Transmission Date: 20120608
  Serious: No
  Sender: FDA-Public Use
  Company Number: US-ABBOTT-11P-163-0837640-00

PATIENT
  Sex: Female
  Weight: 61.29 kg

DRUGS (3)
  1. HUMIRA [Suspect]
     Indication: RHEUMATOID ARTHRITIS
     Dates: start: 20070101, end: 20110501
  2. HUMIRA [Suspect]
     Dates: start: 20110601
  3. MULTI-VITAMINS [Concomitant]
     Indication: VITAMIN SUPPLEMENTATION

REACTIONS (5)
  - HEADACHE [None]
  - OROPHARYNGEAL PAIN [None]
  - PYREXIA [None]
  - PHARYNGITIS STREPTOCOCCAL [None]
  - CHILLS [None]
